FAERS Safety Report 9379513 (Version 3)
Quarter: 2013Q4

REPORT INFORMATION
  Report Type: Spontaneous
  Country: MA (occurrence: MA)
  Receive Date: 20130702
  Receipt Date: 20131230
  Transmission Date: 20140711
  Serious: Yes (Other)
  Sender: FDA-Public Use
  Company Number: PHHY2013MA067726

PATIENT
  Sex: Female

DRUGS (2)
  1. NILOTINIB [Suspect]
     Indication: CHRONIC MYELOID LEUKAEMIA
     Dosage: 800 MG, DAILY
     Route: 048
  2. NILOTINIB [Suspect]
     Dosage: 400 MG, DAILY
     Route: 048

REACTIONS (3)
  - Drug resistance [Not Recovered/Not Resolved]
  - Haematotoxicity [Not Recovered/Not Resolved]
  - White blood cell count decreased [Not Recovered/Not Resolved]
